FAERS Safety Report 12498190 (Version 4)
Quarter: 2017Q1

REPORT INFORMATION
  Report Type: Spontaneous
  Country: US (occurrence: US)
  Receive Date: 20160627
  Receipt Date: 20170220
  Transmission Date: 20170428
  Serious: Yes (Hospitalization, Other)
  Sender: FDA-Public Use
  Company Number: US-009507513-1606USA010497

PATIENT
  Sex: Female
  Weight: 81.64 kg

DRUGS (5)
  1. SPIRONOLACTONE. [Concomitant]
     Active Substance: SPIRONOLACTONE
     Indication: PRODUCT USED FOR UNKNOWN INDICATION
     Dosage: 1 DF, QM
     Route: 065
     Dates: start: 201312, end: 201406
  2. COUMADIN [Suspect]
     Active Substance: WARFARIN SODIUM
     Dosage: 2.5 MG, QOD
     Route: 065
     Dates: end: 20140903
  3. NUVARING [Suspect]
     Active Substance: ETHINYL ESTRADIOL\ETONOGESTREL
     Indication: CYSTITIS INTERSTITIAL
     Dosage: UNK
     Route: 067
     Dates: start: 20140515, end: 201407
  4. COUMADIN [Suspect]
     Active Substance: WARFARIN SODIUM
     Indication: ANTICOAGULANT THERAPY
     Dosage: 5 MG, HS
     Route: 065
     Dates: start: 20140704
  5. COUMADIN [Suspect]
     Active Substance: WARFARIN SODIUM
     Dosage: 5 MG, QOD
     Route: 065
     Dates: end: 20140903

REACTIONS (15)
  - Depression [Unknown]
  - Dizziness exertional [Unknown]
  - Pulmonary embolism [Recovered/Resolved]
  - Pleurisy [Unknown]
  - Anticoagulation drug level below therapeutic [Unknown]
  - Treatment noncompliance [Unknown]
  - Flank pain [Unknown]
  - Herpes simplex [Unknown]
  - Hirsutism [Unknown]
  - Tooth erosion [Not Recovered/Not Resolved]
  - Pneumonia [Recovering/Resolving]
  - Maternal exposure before pregnancy [Recovered/Resolved]
  - Off label use [Recovered/Resolved]
  - Adverse drug reaction [Unknown]
  - Chest injury [Unknown]

NARRATIVE: CASE EVENT DATE: 2014
